FAERS Safety Report 9434792 (Version 1)
Quarter: 2013Q3

REPORT INFORMATION
  Report Type: Spontaneous
  Country: GB (occurrence: GB)
  Receive Date: 20130801
  Receipt Date: 20130801
  Transmission Date: 20140515
  Serious: Yes (Other)
  Sender: FDA-Public Use
  Company Number: GB-PFIZER INC-2013219205

PATIENT
  Age: 50 Year
  Sex: Female
  Weight: 86 kg

DRUGS (4)
  1. SULFASALAZINE [Suspect]
     Indication: PSORIATIC ARTHROPATHY
     Dosage: 500 MG, 2X/DAY
     Route: 048
     Dates: start: 20130611
  2. SULFASALAZINE [Suspect]
     Route: 048
  3. METHOTREXATE [Concomitant]
  4. FOLIC ACID [Concomitant]

REACTIONS (6)
  - Gastritis [Recovered/Resolved]
  - Insomnia [Recovered/Resolved]
  - Onychoclasis [Not Recovered/Not Resolved]
  - Pruritus [Recovered/Resolved]
  - Skin exfoliation [Not Recovered/Not Resolved]
  - Pain of skin [Not Recovered/Not Resolved]
